FAERS Safety Report 22228132 (Version 2)
Quarter: 2023Q2

REPORT INFORMATION
  Report Type: Spontaneous
  Country: US (occurrence: US)
  Receive Date: 20230419
  Receipt Date: 20230605
  Transmission Date: 20230722
  Serious: No
  Sender: FDA-Public Use
  Company Number: US-ALXN-A202305081

PATIENT
  Age: 51 Year
  Sex: Female

DRUGS (1)
  1. ULTOMIRIS [Suspect]
     Active Substance: RAVULIZUMAB-CWVZ
     Indication: Paroxysmal nocturnal haemoglobinuria
     Dosage: 2200 MG, EVERY 8 WEEKS
     Route: 042
     Dates: start: 20230119

REACTIONS (7)
  - Migraine [Unknown]
  - Pain [Unknown]
  - Gait disturbance [Recovered/Resolved]
  - Aphasia [Unknown]
  - Off label use [Unknown]
  - Vomiting [Recovered/Resolved]
  - Pyrexia [Unknown]

NARRATIVE: CASE EVENT DATE: 20230119
